FAERS Safety Report 4400105-5 (Version None)
Quarter: 2004Q3

REPORT INFORMATION
  Report Type: 
  Country: None (occurrence: None)
  Receive Date: 20040716
  Receipt Date: 20040702
  Transmission Date: 20050211
  Serious: Yes (Hospitalization)
  Sender: FDA-Public Use
  Company Number: JP_040503095

PATIENT
  Age: 69 Year
  Sex: Male
  Weight: 63 kg

DRUGS (11)
  1. HUMALOG [Suspect]
     Indication: DIABETES MELLITUS NON-INSULIN-DEPENDENT
     Dosage: 30 U DAY
     Dates: start: 20020823
  2. HUMACART-N (INSULIN HUMAN) [Concomitant]
  3. PRAVASTATIN SODIUM [Concomitant]
  4. ISOSORBIDE MONONITRATE [Concomitant]
  5. FAMOTIDINE [Concomitant]
  6. ENALAPRIL MALEATE [Concomitant]
  7. TICLOPIDINE HCL [Concomitant]
  8. MAGNESIUM OXIDE [Concomitant]
  9. DILTIAZEM HYDROCHLORIDE [Concomitant]
  10. EPADEL (ETHYL ICOSAPENTATE) [Concomitant]
  11. NITROPEN (GLYCERYL TRINITRATE) [Concomitant]

REACTIONS (1)
  - ANGINA UNSTABLE [None]
